FAERS Safety Report 9199398 (Version 1)
Quarter: 2013Q1

REPORT INFORMATION
  Report Type: Spontaneous
  Country: US (occurrence: US)
  Receive Date: 20130329
  Receipt Date: 20130329
  Transmission Date: 20140127
  Serious: No
  Sender: FDA-Public Use
  Company Number: US-009507513-1303USA011455

PATIENT
  Sex: Male

DRUGS (3)
  1. MIRALAX [Suspect]
     Indication: PRODUCT USED FOR UNKNOWN INDICATION
     Dosage: UNK, ONCE
     Route: 048
     Dates: start: 2012
  2. MIRALAX [Suspect]
     Dosage: 17 G, EVERY TWO WEEKS
     Route: 048
  3. MIRALAX [Suspect]
     Dosage: 17 G, EVERY TWO WEEKS
     Route: 048
     Dates: start: 20130221

REACTIONS (2)
  - Tremor [Unknown]
  - Musculoskeletal stiffness [Unknown]
